FAERS Safety Report 4883887-8 (Version None)
Quarter: 2006Q1

REPORT INFORMATION
  Report Type: 
  Country: None (occurrence: None)
  Receive Date: 20060113
  Receipt Date: 20060106
  Transmission Date: 20060701
  Serious: Yes (Life-Threatening, Hospitalization)
  Sender: FDA-Public Use
  Company Number: WAES 0601USA00675

PATIENT
  Age: 9 Year
  Sex: Female

DRUGS (6)
  1. DECADRON [Suspect]
     Indication: LEUKAEMIA
     Dosage: 5.5 MG/BID; PO
     Route: 048
     Dates: start: 20051122, end: 20051129
  2. DOXORUBICIN HCL [Suspect]
     Indication: LEUKAEMIA
     Dosage: 27.5 MG/WKY; IV
     Route: 042
     Dates: start: 20051122, end: 20051129
  3. SUSP POSACONAZOLE [Suspect]
     Indication: FUNGAL INFECTION
     Dosage: PO
     Route: 048
     Dates: start: 20050614, end: 20051120
  4. SUSP POSACONAZOLE [Suspect]
     Indication: FUNGAL INFECTION
     Dosage: PO
     Route: 048
     Dates: start: 20051202
  5. VINCRISTINE SULFATE [Suspect]
     Indication: LEUKAEMIA
     Dosage: 165 MG/WKY; IV
     Route: 042
     Dates: start: 20051122, end: 20051129
  6. INJ ASPARAGINASE [Suspect]
     Indication: LEUKAEMIA
     Dosage: 1000 IU M(2); UNK
     Dates: start: 20051123

REACTIONS (2)
  - BACTERIAL SEPSIS [None]
  - HYPOTENSION [None]
